FAERS Safety Report 19891015 (Version 1)
Quarter: 2021Q3

REPORT INFORMATION
  Report Type: Spontaneous
  Country: GB (occurrence: GB)
  Receive Date: 20210928
  Receipt Date: 20210928
  Transmission Date: 20211014
  Serious: Yes (Other)
  Sender: FDA-Public Use
  Company Number: NVSC2021GB219204

PATIENT
  Age: 45 Year
  Sex: Female
  Weight: 79 kg

DRUGS (2)
  1. MONTELUKAST [Suspect]
     Active Substance: MONTELUKAST SODIUM
     Indication: PRODUCT USED FOR UNKNOWN INDICATION
     Dosage: 1 DF, QD (ONE TO BE TAKEN AT NIGHT)
     Route: 065
     Dates: start: 20210817
  2. OMEPRAZOLE. [Concomitant]
     Active Substance: OMEPRAZOLE
     Indication: PRODUCT USED FOR UNKNOWN INDICATION
     Dosage: 1 DF, QD (ONE TO BE TAKEN EACH DAY)
     Route: 065
     Dates: start: 20210906

REACTIONS (1)
  - Adverse drug reaction [Recovered/Resolved]
